FAERS Safety Report 17334214 (Version 2)
Quarter: 2020Q1

REPORT INFORMATION
  Report Type: Report from Study
  Country: US (occurrence: US)
  Receive Date: 20200128
  Receipt Date: 20200212
  Transmission Date: 20200409
  Serious: Yes (Other)
  Sender: FDA-Public Use
  Company Number: US-ROCHE-2533595

PATIENT
  Age: 62 Year
  Sex: Male
  Weight: 120.8 kg

DRUGS (2)
  1. OBINUTUZUMAB. [Suspect]
     Active Substance: OBINUTUZUMAB
     Indication: CHRONIC LYMPHOCYTIC LEUKAEMIA
     Dosage: 100 MG IV ON DAY 1, CYCLE 1 900 MG IV ON DAY 2, CYCLE 1 1000 MG IV ON DAY 8, CYCLE 1 1000 MG IV ON D
     Route: 042
     Dates: start: 20190403
  2. IBRUTINIB [Suspect]
     Active Substance: IBRUTINIB
     Indication: CHRONIC LYMPHOCYTIC LEUKAEMIA
     Dosage: ON DAYS 1-28?DATE OF LAST IBRUTINIB ADMINISTERED: 06/MAY/2019
     Route: 048
     Dates: start: 20190403

REACTIONS (3)
  - Lymphocyte count decreased [Unknown]
  - Platelet count decreased [Unknown]
  - Diarrhoea [Recovered/Resolved]

NARRATIVE: CASE EVENT DATE: 20190504
